FAERS Safety Report 5850476-8 (Version None)
Quarter: 2008Q3

REPORT INFORMATION
  Report Type: 
  Country: None (occurrence: None)
  Receive Date: 20080819
  Receipt Date: 20080807
  Transmission Date: 20090109
  Serious: Yes (Other)
  Sender: FDA-Public Use
  Company Number: GB-PFIZER INC-2008066591

PATIENT
  Age: 80 Year
  Sex: Female

DRUGS (6)
  1. ARTHROTEC [Interacting]
  2. PRAVASTATIN [Suspect]
     Indication: HYPERCHOLESTEROLAEMIA
  3. AMITRIPTYLINE HYDROCHLORIDE [Interacting]
     Indication: DEPRESSION
  4. ATENOLOL [Interacting]
  5. LEVOTHYROXINE SODIUM [Suspect]
  6. ASPIRIN [Interacting]

REACTIONS (2)
  - COLITIS [None]
  - DRUG INTERACTION [None]
